FAERS Safety Report 6859357-4 (Version None)
Quarter: 2010Q3

REPORT INFORMATION
  Report Type: 
  Country: None (occurrence: None)
  Receive Date: 20100719
  Receipt Date: 20080505
  Transmission Date: 20110219
  Serious: Yes (Hospitalization, Other)
  Sender: FDA-Public Use
  Company Number: US-PFIZER INC-2008018124

PATIENT
  Sex: Female

DRUGS (13)
  1. CHANTIX [Suspect]
     Indication: SMOKING CESSATION THERAPY
  2. CARBOPLATIN [Concomitant]
     Dates: start: 20071218, end: 20071224
  3. ETOPOSIDE [Concomitant]
     Dates: start: 20071218, end: 20071224
  4. ACTOS [Concomitant]
  5. OMEPRAZOLE [Concomitant]
  6. MORPHINE SULFATE [Concomitant]
     Indication: BACK PAIN
  7. EFFEXOR [Concomitant]
  8. LIPITOR [Concomitant]
  9. GLIPIZIDE [Concomitant]
  10. AMLODIPINE [Concomitant]
  11. VITAMIN B COMPLEX CAP [Concomitant]
  12. ZINC OXIDE [Concomitant]
  13. MAGNESIUM OXIDE [Concomitant]

REACTIONS (5)
  - CONFUSIONAL STATE [None]
  - FEELING ABNORMAL [None]
  - INCOHERENT [None]
  - METASTASES TO CENTRAL NERVOUS SYSTEM [None]
  - PERSONALITY CHANGE [None]
